FAERS Safety Report 7429707-9 (Version None)
Quarter: 2011Q2

REPORT INFORMATION
  Report Type: 
  Country: None (occurrence: None)
  Receive Date: 20110418
  Receipt Date: 20110418
  Transmission Date: 20111010
  Serious: Yes (Other)
  Sender: FDA-Public Use
  Company Number: None

PATIENT
  Sex: Female
  Weight: 72.1219 kg

DRUGS (2)
  1. CLINDAMYCIN HCL [Suspect]
     Indication: ENDODONTIC PROCEDURE
     Dosage: ONE CAPSULE 3 TIMES PER DAY PO
     Route: 048
     Dates: start: 20110404, end: 20110404
  2. CLINDAMYCIN HCL [Suspect]
     Indication: TOOTH INFECTION
     Dosage: ONE CAPSULE 3 TIMES PER DAY PO
     Route: 048
     Dates: start: 20110404, end: 20110404

REACTIONS (4)
  - FEELING ABNORMAL [None]
  - NAUSEA [None]
  - ABDOMINAL PAIN UPPER [None]
  - VOMITING PROJECTILE [None]
